FAERS Safety Report 19781275 (Version 4)
Quarter: 2021Q4

REPORT INFORMATION
  Report Type: Report from Study
  Country: US (occurrence: US)
  Receive Date: 20210902
  Receipt Date: 20211004
  Transmission Date: 20220303
  Serious: Yes (Hospitalization)
  Sender: FDA-Public Use
  Company Number: US-PFIZER INC-2021358512

PATIENT
  Age: 81 Year
  Sex: Male
  Weight: 106.62 kg

DRUGS (19)
  1. ENCORAFENIB [Suspect]
     Active Substance: ENCORAFENIB
     Indication: Malignant melanoma
     Dosage: 450 MG, 1X/DAY
     Route: 048
     Dates: start: 20210211, end: 20210325
  2. BINIMETINIB [Suspect]
     Active Substance: BINIMETINIB
     Indication: Malignant melanoma
     Dosage: 45 MG, 2X/DAY
     Route: 048
     Dates: start: 20210211, end: 20210325
  3. PEMBROLIZUMAB [Suspect]
     Active Substance: PEMBROLIZUMAB
     Indication: Malignant melanoma
     Dosage: 200 MG, DAY 1 EVERY 3 WEEKS (21 DAYS)
     Route: 041
     Dates: start: 20210211, end: 20210325
  4. BENADRYL [Suspect]
     Active Substance: DIPHENHYDRAMINE HYDROCHLORIDE
     Indication: Pruritus
     Dosage: 1 TAB, Q6HOURS PRN
     Route: 048
     Dates: start: 20210224, end: 20210329
  5. ZYRTEC [Suspect]
     Active Substance: CETIRIZINE HYDROCHLORIDE
     Indication: Nasal congestion
     Dosage: 1 TAB, 1X/DAY (QDAY)
     Route: 048
     Dates: start: 20210316, end: 20210329
  6. DICYCLOMINE [Concomitant]
     Active Substance: DICYCLOMINE HYDROCHLORIDE
     Indication: Irritable bowel syndrome
     Dosage: 1 TAB, 3X/DAY
     Route: 048
     Dates: start: 201310, end: 20210401
  7. AMLODIPINE BESYLATE\BENAZEPRIL HYDROCHLORIDE [Concomitant]
     Active Substance: AMLODIPINE BESYLATE\BENAZEPRIL HYDROCHLORIDE
     Indication: Essential hypertension
     Dosage: 1 CAP, 1X/DAY (QDAY), [AMLODIPINE BESILATE 10 MG]/[ BENAZEPRIL HYDROCHLORIDE 20 MG]
     Route: 048
     Dates: start: 200501
  8. ASPIRIN [Concomitant]
     Active Substance: ASPIRIN
     Indication: Coronary artery disease
     Dosage: 1 TAB, 1X/DAY (QDAY)
     Route: 048
     Dates: start: 200412
  9. FINASTERIDE [Concomitant]
     Active Substance: FINASTERIDE
     Indication: Prostatomegaly
     Dosage: 1 TAB, 1X/DAY (QDAY)
     Route: 048
     Dates: start: 201307
  10. KLOR-CON M10 [Concomitant]
     Active Substance: POTASSIUM CHLORIDE
     Indication: Hypokalaemia
     Dosage: 2 TABS, 2X/DAY
     Route: 048
     Dates: start: 201708, end: 20210330
  11. LEVOTHYROXINE [Concomitant]
     Active Substance: LEVOTHYROXINE
     Indication: Thyroidectomy
     Dosage: 1 TAB, 1X/DAY (QDAY)
     Route: 048
     Dates: start: 201912, end: 20210305
  12. LEVOTHYROXINE [Concomitant]
     Active Substance: LEVOTHYROXINE
     Indication: Thyroidectomy
     Dosage: 1 TAB, 1X/DAY (QDAY)
     Route: 048
     Dates: start: 20210305
  13. MELOXICAM [Concomitant]
     Active Substance: MELOXICAM
     Indication: Arthritis
     Dosage: 1 TAB, 1X/DAY (QDAY)
     Route: 048
     Dates: start: 200911
  14. SIMVASTATIN [Concomitant]
     Active Substance: SIMVASTATIN
     Indication: Hyperlipidaemia
     Dosage: 1 TAB, ALTERNATE DAY (EVERY OTHER DAY)
     Route: 048
     Dates: start: 200904
  15. SPIRONOLACTONE [Concomitant]
     Active Substance: SPIRONOLACTONE
     Indication: Essential hypertension
     Dosage: 1 TAB, 1X/DAY (QDAY)
     Route: 048
     Dates: start: 202102, end: 20210326
  16. TADALAFIL [Concomitant]
     Active Substance: TADALAFIL
     Indication: Erectile dysfunction
     Dosage: 1 TAB, 1X/DAY (QDAY)
     Route: 048
     Dates: start: 201112
  17. TAMSULOSIN [Concomitant]
     Active Substance: TAMSULOSIN
     Indication: Prostatomegaly
     Dosage: 1 TAB, 1X/DAY (QDAY)
     Route: 048
     Dates: start: 201008
  18. IMODIUM [Concomitant]
     Active Substance: LOPERAMIDE HYDROCHLORIDE
     Indication: Diarrhoea
     Dosage: 2 TAB, QDAY PRN
     Route: 048
     Dates: start: 20210217
  19. BETAMETHASONE DIPROPIONATE [Concomitant]
     Active Substance: BETAMETHASONE DIPROPIONATE
     Indication: Rash maculo-papular
     Dosage: 1 APP, AS NEEDED
     Route: 061
     Dates: start: 20210310

REACTIONS (2)
  - Urinary retention [Recovered/Resolved]
  - Cholangitis [Recovered/Resolved]

NARRATIVE: CASE EVENT DATE: 20210329
